FAERS Safety Report 10424508 (Version 3)
Quarter: 2015Q3

REPORT INFORMATION
  Report Type: Spontaneous
  Country: BR (occurrence: BR)
  Receive Date: 20140902
  Receipt Date: 20150904
  Transmission Date: 20151125
  Serious: Yes (Death, Hospitalization, Other)
  Sender: FDA-Public Use
  Company Number: BR-ABBVIE-14P-020-1278494-00

PATIENT
  Age: 68 Year
  Sex: Female
  Weight: 68 kg

DRUGS (5)
  1. RIVOTRIL [Concomitant]
     Active Substance: CLONAZEPAM
     Indication: ANXIETY
     Dosage: DISCONTINUED DUE TO DEATH; DAILY DOSE: 5 DROPS
     Route: 048
     Dates: start: 2007, end: 20091019
  2. FLUOXETINE [Concomitant]
     Active Substance: FLUOXETINE\FLUOXETINE HYDROCHLORIDE
     Indication: FIBROMYALGIA
     Dosage: DISCONTINUED DUE TO DEATH; DAILY DOSE: 20 MG
     Route: 048
     Dates: start: 2007, end: 20091019
  3. ENALAPRIL MALEATE. [Concomitant]
     Active Substance: ENALAPRIL MALEATE
     Indication: HYPERTENSION
     Dosage: DISCONTINUED DUE TO DEATH; DAILY DOSE: 10 MG
     Route: 048
     Dates: start: 2003, end: 20091019
  4. ROSUVASTATIN CALCIUM. [Concomitant]
     Active Substance: ROSUVASTATIN CALCIUM
     Indication: BLOOD CHOLESTEROL ABNORMAL
     Route: 048
     Dates: end: 20091019
  5. SYNTHROID [Suspect]
     Active Substance: LEVOTHYROXINE SODIUM
     Indication: HYPOTHYROIDISM
     Dosage: DAILY DOSE: 75 MCG, 1 TABLET PER DAY BEFORE THE BREAKFAST
     Route: 048
     Dates: start: 200901, end: 200907

REACTIONS (6)
  - Malignant melanoma [Fatal]
  - Eye disorder [Unknown]
  - Myalgia [Unknown]
  - Cardiac arrest [Fatal]
  - Fibromyalgia [Unknown]
  - Coma [Unknown]

NARRATIVE: CASE EVENT DATE: 2009
